FAERS Safety Report 8534237-7 (Version None)
Quarter: 2012Q3

REPORT INFORMATION
  Report Type: 
  Country: None (occurrence: None)
  Receive Date: 20120724
  Receipt Date: 20120723
  Transmission Date: 20120928
  Serious: Yes (Death)
  Sender: FDA-Public Use
  Company Number: CZ-UCBSA-029734

PATIENT
  Age: 43 Year
  Sex: Female

DRUGS (11)
  1. CIMZIA [Suspect]
     Indication: PSORIATIC ARTHROPATHY
     Route: 058
     Dates: start: 20101210, end: 20110203
  2. AMICLOTON [Concomitant]
     Indication: HYPERTENSION
     Dosage: 1.0 TBL (TABLET)
     Route: 048
     Dates: start: 20060719, end: 20110207
  3. CARDILAN [Concomitant]
     Indication: SUPPLEMENTATION THERAPY
     Dosage: 1 TABLET DAILY
     Dates: start: 20010402, end: 20110207
  4. NORGESTIMATE AND ETHINYL ESTRADIOL [Concomitant]
     Indication: CONTRACEPTION
     Dates: start: 20100101, end: 20110207
  5. METHOTREXATE [Concomitant]
     Indication: PSORIATIC ARTHROPATHY
     Route: 048
     Dates: start: 20100825, end: 20110207
  6. ACIDUM FOLICUM [Concomitant]
     Indication: DRUG TOXICITY PROPHYLAXIS
  7. LOKREN [Concomitant]
     Indication: HYPERTENSION
     Route: 048
     Dates: start: 20090901, end: 20110207
  8. MEDROL [Concomitant]
     Indication: PSORIATIC ARTHROPATHY
     Route: 048
     Dates: start: 20060719, end: 20110207
  9. CALCIUM CARBONATE [Concomitant]
     Indication: SUPPLEMENTATION THERAPY
     Route: 048
     Dates: start: 20070716, end: 20110207
  10. LOFREN [Concomitant]
     Indication: HYPERTENSION
     Route: 048
     Dates: start: 20040101
  11. CELEBREX [Concomitant]
     Indication: PSORIATIC ARTHROPATHY
     Route: 048
     Dates: start: 20040124, end: 20110207

REACTIONS (1)
  - SUDDEN DEATH [None]
